FAERS Safety Report 11094387 (Version 2)
Quarter: 2015Q3

REPORT INFORMATION
  Report Type: Spontaneous
  Country: US (occurrence: US)
  Receive Date: 20150506
  Receipt Date: 20150727
  Transmission Date: 20151125
  Serious: No
  Sender: FDA-Public Use
  Company Number: US-GLAXOSMITHKLINE-US2015059102

PATIENT
  Age: 63 Year
  Sex: Female

DRUGS (1)
  1. ALLI [Suspect]
     Active Substance: ORLISTAT
     Indication: WEIGHT LOSS DIET
     Dosage: UNK

REACTIONS (5)
  - Steatorrhoea [Recovered/Resolved]
  - Product quality issue [Unknown]
  - Treatment noncompliance [Unknown]
  - Diarrhoea [Recovered/Resolved]
  - Drug ineffective [Unknown]
